FAERS Safety Report 23657600 (Version 1)
Quarter: 2024Q1

REPORT INFORMATION
  Report Type: Spontaneous
  Country: US (occurrence: None)
  Receive Date: 20240320
  Receipt Date: 20240320
  Transmission Date: 20240410
  Serious: Yes (Disabling)
  Sender: FDA-Public Use
  Company Number: None

PATIENT
  Age: 44 Year
  Sex: Female

DRUGS (1)
  1. HUMIRA [Suspect]
     Active Substance: ADALIMUMAB
     Indication: Hidradenitis

REACTIONS (5)
  - Scar [None]
  - Hidradenitis [None]
  - Condition aggravated [None]
  - Product use issue [None]
  - Product dispensing error [None]

NARRATIVE: CASE EVENT DATE: 20240319
